FAERS Safety Report 10549379 (Version 2)
Quarter: 2014Q4

REPORT INFORMATION
  Report Type: Spontaneous
  Country: US (occurrence: US)
  Receive Date: 20141028
  Receipt Date: 20141219
  Transmission Date: 20150529
  Serious: Yes (Hospitalization, Other)
  Sender: FDA-Public Use
  Company Number: US-BAYER-2014-158645

PATIENT
  Age: 21 Year
  Sex: Female
  Weight: 74.83 kg

DRUGS (4)
  1. ADVAIR HFA [Concomitant]
     Active Substance: FLUTICASONE PROPIONATE\SALMETEROL XINAFOATE
     Indication: ASTHMA
     Dosage: UNK
     Dates: start: 200301, end: 2010
  2. ALBUTEROL. [Concomitant]
     Active Substance: ALBUTEROL
     Indication: ASTHMA
     Dosage: UNK
     Dates: start: 2003, end: 2010
  3. NASONEX [Concomitant]
     Active Substance: MOMETASONE FUROATE
     Indication: MULTIPLE ALLERGIES
     Dosage: UNK
     Dates: start: 2003, end: 2010
  4. MIRENA [Suspect]
     Active Substance: LEVONORGESTREL
     Indication: CONTRACEPTION
     Dosage: 20 MCG/24HR, CONT
     Route: 015
     Dates: start: 20080929, end: 20090921

REACTIONS (12)
  - Depressed mood [None]
  - Emotional distress [None]
  - Anxiety [None]
  - Genital haemorrhage [None]
  - Internal injury [None]
  - Medical device discomfort [None]
  - Uterine perforation [None]
  - Depression [None]
  - Pelvic pain [None]
  - Fear [None]
  - Abdominal pain [None]
  - Injury [None]

NARRATIVE: CASE EVENT DATE: 200907
